FAERS Safety Report 6952634-8 (Version None)
Quarter: 2010Q3

REPORT INFORMATION
  Report Type: 
  Country: None (occurrence: None)
  Receive Date: 20100829
  Receipt Date: 20100607
  Transmission Date: 20110219
  Serious: No
  Sender: FDA-Public Use
  Company Number: US-ABBOTT-10P-163-0643904-00

PATIENT
  Sex: Male
  Weight: 132.57 kg

DRUGS (6)
  1. NIASPAN [Suspect]
     Indication: PRODUCT USED FOR UNKNOWN INDICATION
     Dates: start: 20100504
  2. TRAZEDONE [Concomitant]
     Indication: PRODUCT USED FOR UNKNOWN INDICATION
  3. ASPIRIN [Concomitant]
     Indication: PRODUCT USED FOR UNKNOWN INDICATION
  4. SIMVASTATIN [Concomitant]
     Indication: PRODUCT USED FOR UNKNOWN INDICATION
  5. EFFEXOR XR [Concomitant]
     Indication: PRODUCT USED FOR UNKNOWN INDICATION
  6. ALLEGRA [Concomitant]
     Indication: PRODUCT USED FOR UNKNOWN INDICATION

REACTIONS (6)
  - DYSGEUSIA [None]
  - DYSPNOEA [None]
  - FEELING HOT [None]
  - FLUSHING [None]
  - NAUSEA [None]
  - PRODUCT TASTE ABNORMAL [None]
